FAERS Safety Report 25888847 (Version 1)
Quarter: 2025Q4

REPORT INFORMATION
  Report Type: Spontaneous
  Country: EU (occurrence: EU)
  Receive Date: 20251007
  Receipt Date: 20251007
  Transmission Date: 20260117
  Serious: Yes (Other)
  Sender: ROCHE
  Company Number: None

PATIENT
  Age: 61 Year
  Sex: Male

DRUGS (8)
  1. TRASTUZUMAB [Suspect]
     Active Substance: TRASTUZUMAB
     Indication: Hormone receptor negative HER2 positive breast cancer
     Dosage: UNK
     Route: 065
  2. TRASTUZUMAB [Suspect]
     Active Substance: TRASTUZUMAB
     Indication: Invasive ductal breast carcinoma
  3. PERTUZUMAB [Suspect]
     Active Substance: PERTUZUMAB
     Indication: Hormone receptor negative HER2 positive breast cancer
     Route: 065
  4. XGEVA [Suspect]
     Active Substance: DENOSUMAB
     Indication: Triple positive breast cancer
     Dosage: 120 MILLIGRAM
     Route: 065
     Dates: start: 202012
  5. XGEVA [Suspect]
     Active Substance: DENOSUMAB
     Indication: Metastases to bone
  6. PALBOCICLIB [Concomitant]
     Active Substance: PALBOCICLIB
     Indication: Triple positive breast cancer
     Dosage: UNK
     Route: 065
     Dates: start: 202012
  7. FULVESTRANT [Concomitant]
     Active Substance: FULVESTRANT
     Indication: Triple positive breast cancer
     Dosage: UNK
     Route: 065
     Dates: start: 202012
  8. DOCETAXEL [Concomitant]
     Active Substance: DOCETAXEL
     Indication: Hormone receptor negative HER2 positive breast cancer
     Route: 065

REACTIONS (5)
  - Triple positive breast cancer [Unknown]
  - Metastases to liver [Recovering/Resolving]
  - Metastases to lung [Unknown]
  - Metastases to lymph nodes [Recovering/Resolving]
  - Off label use [Unknown]
